FAERS Safety Report 11471712 (Version 1)
Quarter: 2015Q3

REPORT INFORMATION
  Report Type: Spontaneous
  Country: BR (occurrence: BR)
  Receive Date: 20150908
  Receipt Date: 20150908
  Transmission Date: 20151125
  Serious: Yes (Disabling, Other)
  Sender: FDA-Public Use
  Company Number: BR-JNJFOC-20150902725

PATIENT
  Sex: Female
  Weight: 63 kg

DRUGS (3)
  1. REMICADE [Suspect]
     Active Substance: INFLIXIMAB
     Indication: RHEUMATOID ARTHRITIS
     Route: 042
  2. GABAPENTIN. [Concomitant]
     Active Substance: GABAPENTIN
     Indication: ARTHRALGIA
     Route: 065
  3. TORSILAX [Concomitant]
     Active Substance: ACETAMINOPHEN\CAFFEINE\CARISOPRODOL\DICLOFENAC
     Indication: ARTHRALGIA
     Dosage: ^4 EM^
     Route: 065

REACTIONS (5)
  - Spinal fracture [Not Recovered/Not Resolved]
  - Movement disorder [Unknown]
  - Decreased immune responsiveness [Not Recovered/Not Resolved]
  - Body height decreased [Unknown]
  - Mobility decreased [Not Recovered/Not Resolved]
